FAERS Safety Report 21661203 (Version 3)
Quarter: 2023Q1

REPORT INFORMATION
  Report Type: Spontaneous
  Country: UA (occurrence: UA)
  Receive Date: 20221130
  Receipt Date: 20230105
  Transmission Date: 20230417
  Serious: No
  Sender: FDA-Public Use
  Company Number: UA-009507513-2210UKR005663

PATIENT
  Sex: Male

DRUGS (8)
  1. MOLNUPIRAVIR [Suspect]
     Active Substance: MOLNUPIRAVIR
     Indication: COVID-19 treatment
     Dosage: STRENGTH: 200 MILLIGRAM, 1 CAPSULE ONCE PER DAY FOR 5 DAYS
     Route: 048
     Dates: start: 202210, end: 202210
  2. ACETAMINOPHEN\ASCORBIC ACID\PHENIRAMINE MALEATE [Concomitant]
     Active Substance: ACETAMINOPHEN\ASCORBIC ACID\PHENIRAMINE MALEATE
     Dosage: UNK
     Dates: start: 20221003
  3. IBUPROFEN [Concomitant]
     Active Substance: IBUPROFEN
     Indication: COVID-19 treatment
     Dosage: STRENGTH: 400 MG, 1 TABLET TWICE PER DAY
     Route: 048
     Dates: start: 202210
  4. MUCITUS [Concomitant]
     Indication: COVID-19 treatment
     Dosage: STRENGTH: 300 MG, 1 TABLET ONCE PER DAY
     Route: 048
     Dates: start: 202210
  5. VIBROCIL [DIMETINDENE MALEATE;NEOMYCIN SULFATE;PHENYLEPHRINE HYDROCHLO [Concomitant]
     Indication: COVID-19 treatment
     Dosage: 2 DOSAGE FORM, TWICE PER DAY IN EACH NOSTRIL
     Route: 045
     Dates: start: 202210
  6. CEFUROKSIM [Concomitant]
     Indication: COVID-19 treatment
     Dosage: STRENGTH: 500 MG, 1 TABLET TWICE PER DAY FOR 5 DAYS
     Route: 048
     Dates: start: 202210
  7. IBUPROFEN [Concomitant]
     Active Substance: IBUPROFEN
  8. ASCORBIC ACID;PARACETAMOL;PHENIRAMINE MALEATE [Concomitant]

REACTIONS (1)
  - Product use issue [Unknown]

NARRATIVE: CASE EVENT DATE: 20221001
